FAERS Safety Report 10212567 (Version 1)
Quarter: 2014Q2

REPORT INFORMATION
  Report Type: Spontaneous
  Country: US (occurrence: US)
  Receive Date: 20140602
  Receipt Date: 20140602
  Transmission Date: 20141212
  Serious: No
  Sender: FDA-Public Use
  Company Number: US-AMGEN-USASP2014035807

PATIENT
  Age: 42 Year
  Sex: Female

DRUGS (8)
  1. ENBREL [Suspect]
     Indication: ANKYLOSING SPONDYLITIS
     Dosage: 50 MG, QWK
     Route: 065
  2. SYNTHROID [Concomitant]
     Dosage: UNK
  3. HYDROCODONE [Concomitant]
     Dosage: 7.5 MG, UNK
  4. ATENOLOL [Concomitant]
     Dosage: 50 MG IN MORNING 25 MG IN EVENING
  5. LORAZEPAM [Concomitant]
     Dosage: UNK, BID
  6. FISH OIL [Concomitant]
     Dosage: 1000 MG ONCE DAILY WITH MEAL
  7. ZIANA [Concomitant]
     Dosage: UNK
     Route: 061
  8. VOLTAREN                           /00372301/ [Concomitant]
     Dosage: UNK

REACTIONS (10)
  - Joint lock [Unknown]
  - Musculoskeletal stiffness [Unknown]
  - Mobility decreased [Unknown]
  - Pain [Unknown]
  - Spinal pain [Unknown]
  - Arthralgia [Unknown]
  - Pain in extremity [Unknown]
  - Fatigue [Unknown]
  - Musculoskeletal pain [Unknown]
  - Chest pain [Unknown]
